FAERS Safety Report 7318833-0 (Version None)
Quarter: 2011Q1

REPORT INFORMATION
  Report Type: 
  Country: None (occurrence: None)
  Receive Date: 20110228
  Receipt Date: 20101020
  Transmission Date: 20110831
  Serious: No
  Sender: FDA-Public Use
  Company Number: A0876190A

PATIENT
  Age: 53 Year
  Sex: Male

DRUGS (4)
  1. HYDROCORTISONE [Concomitant]
  2. IMITREX [Suspect]
     Indication: MIGRAINE
     Route: 058
  3. FLORINEF [Concomitant]
  4. SUMATRIPTAN SUCCINATE [Suspect]
     Indication: MIGRAINE
     Dosage: 6MG UNKNOWN
     Route: 058

REACTIONS (2)
  - DRUG INEFFECTIVE [None]
  - PRODUCT QUALITY ISSUE [None]
